FAERS Safety Report 7875819-5 (Version None)
Quarter: 2011Q4

REPORT INFORMATION
  Report Type: 
  Country: None (occurrence: None)
  Receive Date: 20111031
  Receipt Date: 20111018
  Transmission Date: 20120403
  Serious: Yes (Other)
  Sender: FDA-Public Use
  Company Number: PHFR2011GB06034

PATIENT

DRUGS (1)
  1. TASIGNA [Suspect]
     Dosage: 400 MG, BID

REACTIONS (1)
  - ELECTROCARDIOGRAM QT PROLONGED [None]
